FAERS Safety Report 10217895 (Version 2)
Quarter: 2014Q3

REPORT INFORMATION
  Report Type: Spontaneous
  Country: BR (occurrence: BR)
  Receive Date: 20140605
  Receipt Date: 20140721
  Transmission Date: 20150326
  Serious: Yes (Hospitalization, Other)
  Sender: FDA-Public Use
  Company Number: BR-ROCHE-1412181

PATIENT
  Age: 41 Year
  Sex: Female
  Weight: 51 kg

DRUGS (5)
  1. OXALIPLATIN. [Concomitant]
     Active Substance: OXALIPLATIN
     Indication: GASTRIC CANCER
  2. TAXOTERE [Concomitant]
     Active Substance: DOCETAXEL
  3. 5-FLUOROURACIL [Concomitant]
     Active Substance: FLUOROURACIL
  4. CISPLATIN. [Concomitant]
     Active Substance: CISPLATIN
  5. XELODA [Suspect]
     Active Substance: CAPECITABINE
     Indication: GASTRIC CANCER
     Dosage: THREE TABLETS AT LUNCHTIME AND AT NIGHT
     Route: 065
     Dates: start: 201303, end: 2013

REACTIONS (3)
  - Metastases to ovary [Recovered/Resolved]
  - Metastases to peritoneum [Recovered/Resolved]
  - Metastases to bone [Unknown]

NARRATIVE: CASE EVENT DATE: 201311
